FAERS Safety Report 17476176 (Version 2)
Quarter: 2020Q1

REPORT INFORMATION
  Report Type: Report from Study
  Country: CA (occurrence: CA)
  Receive Date: 20200228
  Receipt Date: 20200228
  Transmission Date: 20200409
  Serious: Yes (Other)
  Sender: FDA-Public Use
  Company Number: CA-JNJFOC-20190617385

PATIENT
  Age: 48 Year
  Sex: Female
  Weight: 74.1 kg

DRUGS (3)
  1. STELARA [Suspect]
     Active Substance: USTEKINUMAB
     Indication: CROHN^S DISEASE
     Dosage: STRENGTH = 90 MG
     Route: 058
     Dates: start: 20180707
  2. STELARA [Suspect]
     Active Substance: USTEKINUMAB
     Dosage: STRENGTH = 90 MG
     Route: 058
     Dates: start: 20180607
  3. STELARA [Suspect]
     Active Substance: USTEKINUMAB
     Route: 058

REACTIONS (5)
  - Urinary tract infection [Recovering/Resolving]
  - Sinus pain [Unknown]
  - Skin infection [Recovered/Resolved]
  - Frequent bowel movements [Recovered/Resolved]
  - Intestinal obstruction [Recovered/Resolved]

NARRATIVE: CASE EVENT DATE: 2019
